FAERS Safety Report 10726181 (Version 2)
Quarter: 2015Q1

REPORT INFORMATION
  Report Type: Spontaneous
  Country: FR (occurrence: None)
  Receive Date: 20150116
  Receipt Date: 20150223
  Transmission Date: 20150721
  Serious: Yes (Other)
  Sender: FDA-Public Use
  Company Number: SP08814

PATIENT
  Sex: Male

DRUGS (8)
  1. NORMACOL [Concomitant]
     Active Substance: KARAYA GUM
  2. PREGABALIN. [Concomitant]
     Active Substance: PREGABALIN
  3. OXYNORM [Concomitant]
     Active Substance: OXYCODONE HYDROCHLORIDE
  4. LYSANXIA [Concomitant]
     Active Substance: PRAZEPAM
  5. ANHYDROUS PHLOROGLUCINOL [Concomitant]
  6. RELISTOR [Suspect]
     Active Substance: METHYLNALTREXONE BROMIDE
     Indication: CONSTIPATION
     Dosage: (8 MG, 2 IN 1 WK) SUBCUTANEOUS
     Route: 058
     Dates: start: 201405, end: 201411
  7. OXYCONTIN [Concomitant]
     Active Substance: OXYCODONE HYDROCHLORIDE
  8. FENTANYL. [Concomitant]
     Active Substance: FENTANYL

REACTIONS (2)
  - Hypertension [None]
  - Dyspnoea [None]

NARRATIVE: CASE EVENT DATE: 20141003
